FAERS Safety Report 13462802 (Version 1)
Quarter: 2017Q2

REPORT INFORMATION
  Report Type: Spontaneous
  Country: US (occurrence: US)
  Receive Date: 20170420
  Receipt Date: 20170420
  Transmission Date: 20170830
  Serious: Yes (Hospitalization)
  Sender: FDA-Public Use
  Company Number: US-ELI_LILLY_AND_COMPANY-US201704005635

PATIENT
  Age: 31 Year
  Sex: Female

DRUGS (1)
  1. PROZAC [Suspect]
     Active Substance: FLUOXETINE HYDROCHLORIDE
     Indication: DEPRESSION
     Dosage: UNK UNK, UNKNOWN
     Route: 048

REACTIONS (3)
  - Sepsis [Not Recovered/Not Resolved]
  - Duodenal perforation [Not Recovered/Not Resolved]
  - Obstruction gastric [Not Recovered/Not Resolved]
